FAERS Safety Report 10369858 (Version 1)
Quarter: 2014Q3

REPORT INFORMATION
  Report Type: Report from Study
  Country: FI (occurrence: FI)
  Receive Date: 20140808
  Receipt Date: 20140808
  Transmission Date: 20150326
  Serious: Yes (Hospitalization, Other)
  Sender: FDA-Public Use
  Company Number: FI-ROCHE-1444161

PATIENT

DRUGS (6)
  1. LEUCOVORIN [Suspect]
     Active Substance: LEUCOVORIN
     Indication: COLORECTAL CANCER METASTATIC
     Route: 065
  2. CAPECITABINE [Suspect]
     Active Substance: CAPECITABINE
     Indication: COLORECTAL CANCER METASTATIC
     Route: 065
  3. IRINOTECAN [Suspect]
     Active Substance: IRINOTECAN
     Indication: COLORECTAL CANCER METASTATIC
     Route: 065
  4. OXALIPLATIN. [Suspect]
     Active Substance: OXALIPLATIN
     Indication: COLORECTAL CANCER METASTATIC
     Route: 065
  5. BEVACIZUMAB [Suspect]
     Active Substance: BEVACIZUMAB
     Indication: COLORECTAL CANCER METASTATIC
     Route: 065
  6. 5-FLUOROURACIL [Suspect]
     Active Substance: FLUOROURACIL
     Indication: COLORECTAL CANCER METASTATIC
     Route: 065

REACTIONS (17)
  - Gastrointestinal perforation [Unknown]
  - Neutropenia [Unknown]
  - Stomatitis [Unknown]
  - Anaemia [Unknown]
  - Rectal haemorrhage [Unknown]
  - Proteinuria [Unknown]
  - Diarrhoea [Unknown]
  - Neuropathy peripheral [Unknown]
  - Ulcer [Unknown]
  - Nausea [Unknown]
  - Thrombocytopenia [Unknown]
  - Haemorrhage [Unknown]
  - Embolism [Unknown]
  - Fatigue [Unknown]
  - Palmar-plantar erythrodysaesthesia syndrome [Unknown]
  - Hypertension [Unknown]
  - Alopecia [Unknown]
